FAERS Safety Report 7533839-4 (Version None)
Quarter: 2011Q2

REPORT INFORMATION
  Report Type: 
  Country: None (occurrence: None)
  Receive Date: 20110608
  Receipt Date: 20060524
  Transmission Date: 20111010
  Serious: Yes (Other)
  Sender: FDA-Public Use
  Company Number: PHNU2006AU02061

PATIENT
  Sex: Female

DRUGS (2)
  1. CLOZAPINE [Suspect]
     Dosage: 500 MG/DAY
     Route: 048
     Dates: start: 19960101
  2. SERTRALINE HYDROCHLORIDE [Concomitant]
     Dosage: 100 MG/DAY

REACTIONS (6)
  - LEFT VENTRICULAR DYSFUNCTION [None]
  - VENTRICULAR HYPOKINESIA [None]
  - VENTRICULAR EXTRASYSTOLES [None]
  - SINUS TACHYCARDIA [None]
  - ECHOCARDIOGRAM ABNORMAL [None]
  - ELECTROCARDIOGRAM ABNORMAL [None]
